FAERS Safety Report 7240919-X (Version None)
Quarter: 2011Q1

REPORT INFORMATION
  Report Type: 
  Country: None (occurrence: None)
  Receive Date: 20110124
  Receipt Date: 20110113
  Transmission Date: 20110831
  Serious: Yes (Hospitalization)
  Sender: FDA-Public Use
  Company Number: PHHY2009DE41887

PATIENT
  Sex: Female

DRUGS (1)
  1. EXTAVIA [Suspect]
     Indication: MULTIPLE SCLEROSIS
     Dosage: 1 INJECTION/250UG EVERY OTHER DAY
     Route: 058
     Dates: start: 20090421

REACTIONS (2)
  - ABDOMINAL HERNIA [None]
  - CHILLS [None]
